FAERS Safety Report 13495616 (Version 2)
Quarter: 2017Q2

REPORT INFORMATION
  Report Type: Report from Study
  Country: US (occurrence: US)
  Receive Date: 20170428
  Receipt Date: 20170508
  Transmission Date: 20170830
  Serious: Yes (Hospitalization)
  Sender: FDA-Public Use
  Company Number: US-TAIHO ONCOLOGY INC-EU-2017-00666

PATIENT
  Age: 73 Year
  Sex: Male
  Weight: 83.99 kg

DRUGS (1)
  1. LONSURF [Suspect]
     Active Substance: TIPIRACIL HYDROCHLORIDE\TRIFLURIDINE
     Indication: APPENDIX CANCER
     Route: 048
     Dates: start: 201602, end: 20170407

REACTIONS (5)
  - White blood cell count decreased [Unknown]
  - Hypertension [Unknown]
  - Myocardial infarction [Unknown]
  - Neutrophil count decreased [Unknown]
  - Disease progression [Unknown]

NARRATIVE: CASE EVENT DATE: 201611
